FAERS Safety Report 6437770-7 (Version None)
Quarter: 2009Q4

REPORT INFORMATION
  Report Type: 
  Country: None (occurrence: None)
  Receive Date: 20091109
  Receipt Date: 20090202
  Transmission Date: 20100525
  Serious: Yes (Other)
  Sender: FDA-Public Use
  Company Number: 09-015

PATIENT
  Sex: Male

DRUGS (1)
  1. CARISOPRODOL [Suspect]
     Indication: SCIATICA
     Dosage: 2 EVERY 4 TO 6 HRS
     Dates: end: 20090101

REACTIONS (1)
  - DRUG INEFFECTIVE [None]
